FAERS Safety Report 14442146 (Version 11)
Quarter: 2018Q3

REPORT INFORMATION
  Report Type: Report from Study
  Country: None (occurrence: DE)
  Receive Date: 20180125
  Receipt Date: 20180727
  Transmission Date: 20181010
  Serious: Yes (Hospitalization)
  Sender: FDA-Public Use
  Company Number: DE-BAUSCH-BL-2018-001719

PATIENT
  Age: 84 Year
  Sex: Male
  Weight: 62.3 kg

DRUGS (23)
  1. DEXAMETHASONE. [Suspect]
     Active Substance: DEXAMETHASONE
     Indication: PRODUCT USED FOR UNKNOWN INDICATION
     Route: 065
  2. 5?FLUOROURACIL [Suspect]
     Active Substance: FLUOROURACIL
     Indication: COLORECTAL CANCER
     Route: 065
  3. BRISERIN [Concomitant]
     Indication: HYPERTENSION
     Route: 065
  4. DIFLUCAN [Concomitant]
     Active Substance: FLUCONAZOLE
     Indication: PRODUCT USED FOR UNKNOWN INDICATION
     Route: 065
  5. IRINOTECAN [Suspect]
     Active Substance: IRINOTECAN
     Indication: COLORECTAL CANCER
     Dosage: EVERY TWO WEEKS
     Route: 042
     Dates: start: 20160512
  6. IRINOTECAN [Suspect]
     Active Substance: IRINOTECAN
     Route: 042
     Dates: start: 20160628
  7. IRINOTECAN [Suspect]
     Active Substance: IRINOTECAN
     Route: 042
  8. IRINOTECAN [Suspect]
     Active Substance: IRINOTECAN
     Route: 042
     Dates: start: 20160512
  9. SPASMEX [Concomitant]
     Indication: PRODUCT USED FOR UNKNOWN INDICATION
     Route: 065
  10. FOLINIC ACID [Suspect]
     Active Substance: LEUCOVORIN
     Indication: PRODUCT USED FOR UNKNOWN INDICATION
     Route: 065
  11. FOLINIC ACID [Suspect]
     Active Substance: LEUCOVORIN
     Dosage: 7 MONTHS 11 DAYS 12 HOURS
     Route: 041
     Dates: start: 20160610, end: 20170120
  12. AVASTIN [Suspect]
     Active Substance: BEVACIZUMAB
     Dosage: EVERY OTHER WEEK
     Route: 042
     Dates: start: 20170119
  13. CLEXANE [Concomitant]
     Active Substance: ENOXAPARIN SODIUM
     Indication: THROMBOSIS PROPHYLAXIS
     Route: 065
     Dates: start: 20160512
  14. AVASTIN [Suspect]
     Active Substance: BEVACIZUMAB
     Dosage: EVERY OTHER WEEK
     Route: 042
     Dates: start: 20160610
  15. IRINOTECAN [Suspect]
     Active Substance: IRINOTECAN
     Route: 042
  16. AVASTIN [Suspect]
     Active Substance: BEVACIZUMAB
     Route: 042
  17. AVASTIN [Suspect]
     Active Substance: BEVACIZUMAB
     Dosage: EVERY 3 WEEKS
     Route: 042
     Dates: start: 20160512
  18. IRINOTECAN [Suspect]
     Active Substance: IRINOTECAN
     Route: 042
  19. IRINOTECAN [Suspect]
     Active Substance: IRINOTECAN
     Route: 042
  20. IRINOTECAN [Suspect]
     Active Substance: IRINOTECAN
     Route: 042
  21. AVASTIN [Suspect]
     Active Substance: BEVACIZUMAB
     Indication: COLORECTAL CANCER
     Dosage: EVERY OTHER WEEK
     Route: 042
     Dates: start: 20160512
  22. IRINOTECAN [Suspect]
     Active Substance: IRINOTECAN
     Dosage: EVERY TWO WEEKS
     Route: 042
     Dates: start: 20160610
  23. IRINOTECAN [Suspect]
     Active Substance: IRINOTECAN
     Dosage: EVERY OTHER WEEK
     Route: 042
     Dates: start: 20170119

REACTIONS (2)
  - Mucosal inflammation [Recovered/Resolved]
  - Off label use [Unknown]

NARRATIVE: CASE EVENT DATE: 20160617
